FAERS Safety Report 6235621-7 (Version None)
Quarter: 2009Q2

REPORT INFORMATION
  Report Type: 
  Country: None (occurrence: None)
  Receive Date: 20090616
  Receipt Date: 20090603
  Transmission Date: 20091009
  Serious: Yes (Hospitalization, Disabling, Other)
  Sender: FDA-Public Use
  Company Number: A-CH2009-24830

PATIENT
  Age: 10 Year
  Sex: Male

DRUGS (3)
  1. TRACLEER [Suspect]
     Indication: PULMONARY ARTERIAL HYPERTENSION
     Dosage: 62.5 MG, BID, ORAL; 31.25 MG, BID, ORAL
     Route: 048
     Dates: start: 20080701, end: 20080801
  2. TRACLEER [Suspect]
     Indication: PULMONARY ARTERIAL HYPERTENSION
     Dosage: 62.5 MG, BID, ORAL; 31.25 MG, BID, ORAL
     Route: 048
     Dates: start: 20080801
  3. DIGOXIN [Suspect]

REACTIONS (10)
  - BRADYCARDIA [None]
  - DISEASE PROGRESSION [None]
  - FATIGUE [None]
  - PALPITATIONS [None]
  - PULMONARY ARTERIAL HYPERTENSION [None]
  - SICK SINUS SYNDROME [None]
  - SOMATISATION DISORDER [None]
  - SYNCOPE [None]
  - TACHYCARDIA [None]
  - TRICUSPID VALVE INCOMPETENCE [None]
